FAERS Safety Report 8058831-5 (Version None)
Quarter: 2012Q1

REPORT INFORMATION
  Report Type: 
  Country: None (occurrence: None)
  Receive Date: 20120120
  Receipt Date: 20111207
  Transmission Date: 20120608
  Serious: No
  Sender: FDA-Public Use
  Company Number: US-BRISTOL-MYERS SQUIBB COMPANY-16274771

PATIENT
  Sex: Male
  Weight: 86 kg

DRUGS (1)
  1. YERVOY [Suspect]
     Dosage: THIRD TREATMENT ON 13DEC2011

REACTIONS (1)
  - RASH [None]
